FAERS Safety Report 9024039 (Version 1)
Quarter: 2013Q1

REPORT INFORMATION
  Report Type: Spontaneous
  Country: US (occurrence: US)
  Receive Date: 20130122
  Receipt Date: 20130122
  Transmission Date: 20140127
  Serious: No
  Sender: FDA-Public Use
  Company Number: US-009507513-1301USA005369

PATIENT
  Sex: Female

DRUGS (1)
  1. NUVARING [Suspect]
     Indication: CONTRACEPTION
     Dosage: 0.120 MG/ DAY OF ETONOGESTREL AND 0.015 MG/DAY OF ETHINYL ESTRADIOL / 21DAYS
     Route: 067

REACTIONS (1)
  - Cervix oedema [Recovered/Resolved]
